FAERS Safety Report 12477179 (Version 1)
Quarter: 2016Q2

REPORT INFORMATION
  Report Type: Spontaneous
  Country: US (occurrence: US)
  Receive Date: 20160617
  Receipt Date: 20160617
  Transmission Date: 20160815
  Serious: No
  Sender: FDA-Public Use
  Company Number: US-MEDA-2016060028

PATIENT
  Sex: Female

DRUGS (2)
  1. FLUTICASONE [Concomitant]
     Active Substance: FLUTICASONE\FLUTICASONE PROPIONATE
     Indication: RHINITIS ALLERGIC
  2. AZELASTINE HYDROCHLORIDE. [Suspect]
     Active Substance: AZELASTINE HYDROCHLORIDE
     Indication: DYSPNOEA

REACTIONS (1)
  - Drug ineffective [Not Recovered/Not Resolved]
